FAERS Safety Report 11224024 (Version 6)
Quarter: 2015Q3

REPORT INFORMATION
  Report Type: Report from Study
  Country: AU (occurrence: AU)
  Receive Date: 20150629
  Receipt Date: 20150904
  Transmission Date: 20151125
  Serious: Yes (Death, Hospitalization)
  Sender: FDA-Public Use
  Company Number: PHHY2015AU077576

PATIENT
  Age: 65 Year
  Sex: Male

DRUGS (8)
  1. CYPROTERONE [Concomitant]
     Active Substance: CYPROTERONE
     Indication: DEPRESSED LEVEL OF CONSCIOUSNESS
     Dosage: 100 MG, BID
     Route: 048
  2. CHOLECALCIFEROL [Concomitant]
     Active Substance: CHOLECALCIFEROL
     Indication: VITAMIN D DECREASED
     Dosage: 25 UG, QD
     Route: 048
  3. CLOZARIL [Suspect]
     Active Substance: CLOZAPINE
     Indication: SCHIZOPHRENIA
     Dosage: UNK
     Route: 048
     Dates: start: 19960418, end: 20150624
  4. VALPROATE SODIUM. [Concomitant]
     Active Substance: VALPROATE SODIUM
     Indication: AFFECTIVE DISORDER
     Dosage: 500 MG, BID
     Route: 048
  5. RISEDRONATE [Concomitant]
     Active Substance: RISEDRONATE SODIUM
     Indication: OSTEOPOROSIS
     Dosage: 35 MG, QW
     Route: 048
  6. SERTRALINE [Concomitant]
     Active Substance: SERTRALINE HYDROCHLORIDE
     Indication: DEPRESSION
     Dosage: 25 MG, QD (MANE)
     Route: 048
     Dates: end: 201508
  7. BENZTROPINE [Concomitant]
     Active Substance: BENZTROPINE
     Indication: EXTRAPYRAMIDAL DISORDER
     Dosage: 20 MG, UNK
     Route: 048
  8. OXYBUTYNIN [Concomitant]
     Active Substance: OXYBUTYNIN
     Indication: POLLAKIURIA
     Dosage: 5 MG, BID
     Route: 048

REACTIONS (10)
  - Death [Fatal]
  - Appendicitis perforated [Not Recovered/Not Resolved]
  - Constipation [Unknown]
  - Post procedural infection [Unknown]
  - Vomiting [Unknown]
  - Intestinal obstruction [Unknown]
  - Diarrhoea [Recovered/Resolved]
  - Necrosis [Unknown]
  - Antipsychotic drug level below therapeutic [Unknown]
  - Abdominal adhesions [Recovering/Resolving]

NARRATIVE: CASE EVENT DATE: 20150625
